FAERS Safety Report 6982276-X (Version None)
Quarter: 2010Q3

REPORT INFORMATION
  Report Type: 
  Country: None (occurrence: None)
  Receive Date: 20100914
  Receipt Date: 20091210
  Transmission Date: 20110219
  Serious: No
  Sender: FDA-Public Use
  Company Number: US-PFIZER INC-2009308942

PATIENT
  Sex: Female
  Weight: 79.4 kg

DRUGS (5)
  1. LYRICA [Suspect]
     Indication: BACK PAIN
     Dosage: 300 MG, 1X/DAY
     Dates: start: 20070101, end: 20091205
  2. LYRICA [Suspect]
     Indication: NEURALGIA
  3. NEURONTIN [Suspect]
     Indication: BACK PAIN
     Dosage: UNK
     Dates: start: 20091201
  4. NEURONTIN [Suspect]
     Indication: NEURALGIA
  5. CYMBALTA [Concomitant]
     Dosage: UNK

REACTIONS (3)
  - DYSPNOEA [None]
  - GAIT DISTURBANCE [None]
  - PAIN [None]
